FAERS Safety Report 17856704 (Version 1)
Quarter: 2020Q2

REPORT INFORMATION
  Report Type: Spontaneous
  Country: DE (occurrence: DE)
  Receive Date: 20200603
  Receipt Date: 20200603
  Transmission Date: 20200714
  Serious: Yes (Other)
  Sender: FDA-Public Use
  Company Number: NVSC2020DE148264

PATIENT
  Sex: Female

DRUGS (6)
  1. LEVETIRACETAM. [Suspect]
     Active Substance: LEVETIRACETAM
     Indication: MYOCLONIC EPILEPSY
     Dosage: 1000 MG, QD
     Route: 065
  2. VALPROATE [Concomitant]
     Active Substance: VALPROIC ACID
     Indication: MYOCLONIC EPILEPSY
     Dosage: 1000 MG, QD
     Route: 065
     Dates: start: 2011
  3. VALPROATE [Concomitant]
     Active Substance: VALPROIC ACID
     Dosage: 1300 MG, QD
     Route: 065
  4. LEVETIRACETAM. [Suspect]
     Active Substance: LEVETIRACETAM
     Dosage: 3000 MG, QD
     Route: 065
     Dates: start: 2003
  5. VALPROATE [Concomitant]
     Active Substance: VALPROIC ACID
     Dosage: 800 MG, QD
     Route: 065
     Dates: start: 201111
  6. VALPROATE [Concomitant]
     Active Substance: VALPROIC ACID
     Dosage: 1300 MG, QD
     Route: 065

REACTIONS (5)
  - Myoclonic epilepsy [Unknown]
  - Generalised tonic-clonic seizure [Unknown]
  - Impulse-control disorder [Recovered/Resolved]
  - Maternal exposure before pregnancy [Unknown]
  - Drug ineffective [Unknown]

NARRATIVE: CASE EVENT DATE: 2003
